FAERS Safety Report 10287526 (Version 1)
Quarter: 2014Q3

REPORT INFORMATION
  Report Type: Spontaneous
  Country: FR (occurrence: None)
  Receive Date: 20140707
  Receipt Date: 20140707
  Transmission Date: 20150326
  Serious: Yes (Hospitalization)
  Sender: FDA-Public Use
  Company Number: SYM-2014-22541

PATIENT
  Age: 90 Year
  Sex: Male

DRUGS (16)
  1. EXELON (RIVASTIGMINE HYDROGEN TARTRATE) (RIVASTIGMINE HYDROGEN TARTRATE) [Concomitant]
  2. OFLOCET [Suspect]
     Active Substance: OFLOXACIN
     Indication: URINARY TRACT INFECTION
     Route: 048
     Dates: start: 20140402, end: 20140413
  3. MOPRAL (OMEPRAZOLE) (OMEPRAZOLE) [Concomitant]
  4. RAMIPRIL (RAMIPRIL) [Concomitant]
     Active Substance: RAMIPRIL
  5. LASILIX (FUROSEMIDE) (FUROSEMIDE) [Concomitant]
     Active Substance: FUROSEMIDE
  6. KARDEGIC (ACETYLSALICYLATE LYSINE) (ACETYLSALICYLATE LYSINE) [Concomitant]
  7. FLAGYL [Suspect]
     Active Substance: METRONIDAZOLE\METRONIDAZOLE HYDROCHLORIDE
     Indication: PRODUCT USED FOR UNKNOWN INDICATION
     Dates: start: 20140422
  8. PIPERACILLIN AND TAZOBACTAM [Suspect]
     Active Substance: PIPERACILLIN SODIUM\TAZOBACTAM SODIUM
     Indication: PRODUCT USED FOR UNKNOWN INDICATION
     Route: 042
     Dates: start: 20140425
  9. MECIR (TAMSULOSIN HYDROCHLORIDE) (TAMSULOSIN HYDROCHLORIDE) [Concomitant]
  10. ROCEPHINE (CEFTRIAXONE SODIUM) (CEFTRIAXONE SODIUM) [Suspect]
     Active Substance: CEFTRIAXONE SODIUM
     Indication: PRODUCT USED FOR UNKNOWN INDICATION
     Dates: start: 20140422
  11. LACTULOSE (LACTULOSE) [Concomitant]
     Active Substance: LACTULOSE
  12. TIAPRIDAL (TIAPRIDE HYDROCHLORIDE) (TIAPRIDE HYDROCHLORIDE) [Concomitant]
  13. VITAMIN B12 (CYANOCOBALAMIN) (CYANOCOBALAMIN) [Concomitant]
  14. LERCAN (LERCANIDIPINE HYDROCHLORIDE) (LERCANIDIPINE HYDROCHLORIDE) [Concomitant]
  15. UVEDOSE (COLECALCIFEROL) (COLECALCIFEROL) [Concomitant]
  16. DIFFU K (POTASSIUM CHLORIDE) (POTASSIUM CHLORIDE) [Concomitant]
     Active Substance: POTASSIUM CHLORIDE

REACTIONS (6)
  - Diarrhoea [None]
  - Clostridium difficile colitis [None]
  - Renal failure acute [None]
  - Cystitis [None]
  - Escherichia infection [None]
  - Vomiting [None]

NARRATIVE: CASE EVENT DATE: 20140502
